FAERS Safety Report 9306122 (Version 1)
Quarter: 2013Q2

REPORT INFORMATION
  Report Type: Spontaneous
  Country: US (occurrence: US)
  Receive Date: 20130523
  Receipt Date: 20130523
  Transmission Date: 20140414
  Serious: Yes (Hospitalization)
  Sender: FDA-Public Use
  Company Number: US-ROCHE-1226754

PATIENT
  Age: 16 Year
  Sex: Male

DRUGS (8)
  1. XOLAIR [Suspect]
     Indication: SEASONAL ALLERGY
     Route: 065
  2. XOLAIR [Suspect]
     Indication: ASTHMA
  3. XYZAL [Concomitant]
     Route: 065
  4. XOPENEX [Concomitant]
     Route: 065
  5. AEROSOL INHALATION (UNK INGREDIENTS) [Concomitant]
     Route: 055
  6. PATANASE [Concomitant]
     Route: 045
  7. QVAR [Concomitant]
     Route: 048
  8. OMEPRAZOLE [Concomitant]
     Route: 048

REACTIONS (6)
  - Dyspnoea [Not Recovered/Not Resolved]
  - Sensation of foreign body [Not Recovered/Not Resolved]
  - Erythema [Unknown]
  - Erythema [Unknown]
  - Erythema [Unknown]
  - Erythema [Unknown]
